FAERS Safety Report 12092989 (Version 2)
Quarter: 2017Q1

REPORT INFORMATION
  Report Type: Spontaneous
  Country: US (occurrence: US)
  Receive Date: 20160219
  Receipt Date: 20170123
  Transmission Date: 20170428
  Serious: No
  Sender: FDA-Public Use
  Company Number: US-PFIZER INC-2016043119

PATIENT
  Age: 59 Year
  Sex: Male

DRUGS (2)
  1. MORPHINE SULFATE. [Suspect]
     Active Substance: MORPHINE SULFATE
     Dosage: UNK
  2. CILOSTAZOL. [Suspect]
     Active Substance: CILOSTAZOL
     Dosage: UNK

REACTIONS (1)
  - Drug hypersensitivity [Unknown]
